FAERS Safety Report 4659829-7 (Version None)
Quarter: 2005Q2

REPORT INFORMATION
  Report Type: 
  Country: None (occurrence: None)
  Receive Date: 20050510
  Receipt Date: 20050504
  Transmission Date: 20051028
  Serious: Yes (Hospitalization)
  Sender: FDA-Public Use
  Company Number: 200503788

PATIENT
  Age: 48 Year
  Sex: Female

DRUGS (2)
  1. BOTOX COSMETIC [Suspect]
     Indication: SKIN WRINKLING
     Dates: start: 20050430
  2. RESTYLANE [Suspect]
     Indication: SKIN WRINKLING
     Dates: start: 20050430

REACTIONS (3)
  - ANGIONEUROTIC OEDEMA [None]
  - DISCOMFORT [None]
  - HYPERSENSITIVITY [None]
